FAERS Safety Report 6979774-1 (Version None)
Quarter: 2010Q3

REPORT INFORMATION
  Report Type: 
  Country: None (occurrence: None)
  Receive Date: 20100914
  Receipt Date: 20100907
  Transmission Date: 20110219
  Serious: Yes (Hospitalization)
  Sender: FDA-Public Use
  Company Number: SE-BIOGENIDEC-2010BI030986

PATIENT
  Age: 34 Year
  Sex: Male

DRUGS (6)
  1. TYSABRI [Suspect]
     Indication: MULTIPLE SCLEROSIS
     Route: 042
     Dates: start: 20070501, end: 20100812
  2. CITALOPRAM HYDROBROMIDE [Concomitant]
     Route: 048
     Dates: start: 20060801
  3. MAXALT [Concomitant]
     Route: 048
  4. LEVITRA [Concomitant]
     Route: 048
  5. IBUPROFEN [Concomitant]
     Route: 048
  6. ACETAMINOPHEN W/ CODEINE [Concomitant]
     Route: 048

REACTIONS (2)
  - DIARRHOEA [None]
  - DIARRHOEA HAEMORRHAGIC [None]
